FAERS Safety Report 9149808 (Version 1)
Quarter: 2013Q1

REPORT INFORMATION
  Report Type: Spontaneous
  Country: US (occurrence: US)
  Receive Date: 20130308
  Receipt Date: 20130308
  Transmission Date: 20140127
  Serious: No
  Sender: FDA-Public Use
  Company Number: US-ENDO PHARMACEUTICALS INC.-OPCR20120779

PATIENT
  Age: 55 Year
  Sex: Female

DRUGS (7)
  1. OPANA ER 20MG [Suspect]
     Indication: PRODUCT USED FOR UNKNOWN INDICATION
     Route: 048
     Dates: start: 2012
  2. GABAPENTIN [Concomitant]
     Indication: PRODUCT USED FOR UNKNOWN INDICATION
     Dosage: UNKNOWN
     Route: 048
  3. GABAPENTIN [Concomitant]
     Dosage: UNKNOWN
     Route: 048
  4. LISINOPRIL [Concomitant]
     Indication: PRODUCT USED FOR UNKNOWN INDICATION
     Dosage: UNKNOWN
     Route: 048
  5. LISINOPRIL [Concomitant]
     Dosage: UNKNOWN
     Route: 048
  6. DILAUDID [Concomitant]
     Indication: PRODUCT USED FOR UNKNOWN INDICATION
     Dosage: UNKNOWN
     Route: 048
  7. DILAUDID [Concomitant]
     Dosage: UNKNOWN
     Route: 048

REACTIONS (1)
  - Medication residue present [Not Recovered/Not Resolved]
